FAERS Safety Report 9512230 (Version 2)
Quarter: 2013Q3

REPORT INFORMATION
  Report Type: Spontaneous
  Country: NO (occurrence: None)
  Receive Date: 20130906
  Receipt Date: 20130919
  Transmission Date: 20140515
  Serious: Yes (Hospitalization, Other)
  Sender: FDA-Public Use
  Company Number: 2013DEPNO00025

PATIENT
  Sex: 0

DRUGS (4)
  1. DEPOCYT(E) (CYTARABINE) LIPOSOME INJECTABLE SUSPENSION [Suspect]
     Indication: PRODUCT USED FOR UNKNOWN INDICATION
     Route: 042
     Dates: start: 20111212, end: 20111215
  2. METHOTREXATE (METHOTREXATE) [Suspect]
     Indication: PRODUCT USED FOR UNKNOWN INDICATION
     Route: 042
     Dates: start: 20111212, end: 20111215
  3. DOXORUBICIN [Suspect]
     Indication: PRODUCT USED FOR UNKNOWN INDICATION
     Route: 042
     Dates: start: 20111212, end: 20111215
  4. CYCLOPHOSPHAMIDE [Suspect]
     Indication: PRODUCT USED FOR UNKNOWN INDICATION
     Dates: start: 20111212, end: 20111215

REACTIONS (3)
  - Neutropenic sepsis [None]
  - Escherichia bacteraemia [None]
  - Klebsiella bacteraemia [None]
